FAERS Safety Report 25034434 (Version 1)
Quarter: 2025Q1

REPORT INFORMATION
  Report Type: Spontaneous
  Country: US (occurrence: US)
  Receive Date: 20250304
  Receipt Date: 20250304
  Transmission Date: 20250409
  Serious: No
  Sender: ALEMBIC
  Company Number: US-ALEMBIC PHARMACUETICALS LIMITED-2025SCAL000142

PATIENT

DRUGS (1)
  1. LAMOTRIGINE [Suspect]
     Active Substance: LAMOTRIGINE
     Indication: Bipolar disorder
     Route: 065

REACTIONS (3)
  - Drug ineffective [Unknown]
  - Product substitution issue [Unknown]
  - Suspected product quality issue [Unknown]
